FAERS Safety Report 4798916-X (Version None)
Quarter: 2005Q4

REPORT INFORMATION
  Report Type: 
  Country: None (occurrence: None)
  Receive Date: 20051014
  Receipt Date: 20050819
  Transmission Date: 20060501
  Serious: Yes (Hospitalization)
  Sender: FDA-Public Use
  Company Number: DE-AMGEN-UK147232

PATIENT
  Sex: Female
  Weight: 62 kg

DRUGS (2)
  1. NEUPOGEN [Suspect]
     Indication: PERIPHERAL BLOOD STEM CELL APHERESIS
     Route: 058
     Dates: start: 20050809, end: 20050816
  2. CYCLOPHOSPHAMIDE [Concomitant]
     Dates: start: 20050805, end: 20050806

REACTIONS (3)
  - BLOOD CREATININE INCREASED [None]
  - BLOOD UREA INCREASED [None]
  - LEUKOCYTOSIS [None]
